FAERS Safety Report 18593603 (Version 2)
Quarter: 2021Q1

REPORT INFORMATION
  Report Type: Report from Study
  Country: None (occurrence: US)
  Receive Date: 20201209
  Receipt Date: 20210102
  Transmission Date: 20210419
  Serious: Yes (Other)
  Sender: FDA-Public Use
  Company Number: US-ABBVIE-20K-163-3675695-00

PATIENT
  Age: 49 Year
  Sex: Female
  Weight: 70.37 kg

DRUGS (1)
  1. HUMIRA [Suspect]
     Active Substance: ADALIMUMAB
     Indication: COLITIS ULCERATIVE
     Route: 058
     Dates: start: 202008

REACTIONS (3)
  - Therapeutic product effect decreased [Unknown]
  - Seizure [Not Recovered/Not Resolved]
  - Brain stem glioma [Not Recovered/Not Resolved]

NARRATIVE: CASE EVENT DATE: 2020
